FAERS Safety Report 8028577-8 (Version None)
Quarter: 2012Q1

REPORT INFORMATION
  Report Type: 
  Country: None (occurrence: None)
  Receive Date: 20120106
  Receipt Date: 20111228
  Transmission Date: 20120608
  Serious: Yes (Hospitalization)
  Sender: FDA-Public Use
  Company Number: BR-US-EMD SERONO, INC.-7057941

PATIENT
  Sex: Male

DRUGS (9)
  1. MANTIDAN [Concomitant]
  2. BACLOFEN [Concomitant]
  3. FLUOXETINE [Concomitant]
  4. CREPTOGREL [Concomitant]
  5. SINVASTATINE [Concomitant]
  6. SOMALGIN [Concomitant]
  7. REBIF [Suspect]
     Indication: RELAPSING-REMITTING MULTIPLE SCLEROSIS
     Dates: start: 19990401
  8. RETEMIC [Concomitant]
  9. SINVASTATINE [Concomitant]

REACTIONS (6)
  - ISCHAEMIC STROKE [None]
  - VIITH NERVE PARALYSIS [None]
  - MUSCULAR WEAKNESS [None]
  - GAIT DISTURBANCE [None]
  - MICTURITION URGENCY [None]
  - EMOTIONAL DISORDER [None]
